FAERS Safety Report 7109932-7 (Version None)
Quarter: 2010Q4

REPORT INFORMATION
  Report Type: 
  Country: None (occurrence: None)
  Receive Date: 20101116
  Receipt Date: 20101116
  Transmission Date: 20110411
  Serious: Yes (Hospitalization, Other)
  Sender: FDA-Public Use
  Company Number: None

PATIENT
  Age: 20 Year
  Sex: Female
  Weight: 46.7205 kg

DRUGS (2)
  1. YAZ [Suspect]
     Indication: CONTRACEPTION
     Dates: start: 20081201, end: 20091101
  2. YAZ [Suspect]
     Indication: OVARIAN CYST
     Dates: start: 20081201, end: 20091101

REACTIONS (1)
  - CHOLELITHIASIS [None]
